FAERS Safety Report 17837923 (Version 1)
Quarter: 2020Q2

REPORT INFORMATION
  Report Type: Report from Study
  Country: GB (occurrence: GB)
  Receive Date: 20200528
  Receipt Date: 20200528
  Transmission Date: 20200714
  Serious: Yes (Other)
  Sender: FDA-Public Use
  Company Number: GB-AMGEN-GBRSL2020085299

PATIENT
  Sex: Female

DRUGS (1)
  1. AMGEVITA [Suspect]
     Active Substance: ADALIMUMAB
     Indication: COLITIS ULCERATIVE
     Dosage: UNK
     Route: 065

REACTIONS (5)
  - Rectal haemorrhage [Not Recovered/Not Resolved]
  - Fatigue [Unknown]
  - Frequent bowel movements [Not Recovered/Not Resolved]
  - Influenza like illness [Unknown]
  - Headache [Recovered/Resolved]
